FAERS Safety Report 6756115-6 (Version None)
Quarter: 2010Q2

REPORT INFORMATION
  Report Type: 
  Country: None (occurrence: None)
  Receive Date: 20100604
  Receipt Date: 20100525
  Transmission Date: 20101027
  Serious: Yes (Other)
  Sender: FDA-Public Use
  Company Number: US-PFIZER INC-2010066239

PATIENT
  Sex: Male
  Weight: 83.9 kg

DRUGS (6)
  1. CHANTIX [Suspect]
     Indication: EX-TOBACCO USER
     Dosage: 0.5 MG, 1X/DAY
     Route: 048
     Dates: start: 20100516
  2. CHANTIX [Suspect]
     Dosage: 0.5 MG, 2X/DAY
     Dates: start: 20100501
  3. VICODIN [Suspect]
     Indication: CERVICAL VERTEBRAL FRACTURE
     Dosage: UNK
     Dates: end: 20100522
  4. VICODIN [Suspect]
     Indication: BACK INJURY
  5. VICODIN [Suspect]
     Indication: PAIN
  6. SYMBICORT [Concomitant]

REACTIONS (9)
  - AGITATION [None]
  - DECREASED APPETITE [None]
  - DEPRESSION [None]
  - DIARRHOEA [None]
  - DRUG INTERACTION [None]
  - DRUG WITHDRAWAL SYNDROME [None]
  - FLATULENCE [None]
  - IRRITABILITY [None]
  - NAUSEA [None]
